FAERS Safety Report 19937697 (Version 3)
Quarter: 2022Q3

REPORT INFORMATION
  Report Type: Spontaneous
  Country: CA (occurrence: CA)
  Receive Date: 20211011
  Receipt Date: 20220812
  Transmission Date: 20221026
  Serious: Yes (Other)
  Sender: FDA-Public Use
  Company Number: CA-BAUSCH-BL-2021-034054

PATIENT
  Sex: Female

DRUGS (9)
  1. BUDESONIDE [Suspect]
     Active Substance: BUDESONIDE
     Indication: Product used for unknown indication
     Route: 065
  2. MESALAMINE [Suspect]
     Active Substance: MESALAMINE
     Indication: Product used for unknown indication
     Route: 065
  3. HUMIRA [Suspect]
     Active Substance: ADALIMUMAB
     Indication: Colitis ulcerative
     Route: 058
  4. IMURAN [Suspect]
     Active Substance: AZATHIOPRINE
     Indication: Product used for unknown indication
     Route: 065
  5. INFLIXIMAB [Suspect]
     Active Substance: INFLIXIMAB
     Indication: Product used for unknown indication
     Route: 065
  6. INFLIXIMAB [Suspect]
     Active Substance: INFLIXIMAB
     Route: 065
  7. PREDNISONE [Suspect]
     Active Substance: PREDNISONE
     Indication: Product used for unknown indication
     Route: 065
  8. REMICADE [Suspect]
     Active Substance: INFLIXIMAB
     Indication: Product used for unknown indication
     Dosage: POWDER AND SOLVENT FOR CONCENTRATE FOR SOLUTION FOR INFUSION
     Route: 042
  9. ZOSTAVAX [Concomitant]
     Active Substance: VARICELLA-ZOSTER VIRUS STRAIN OKA/MERCK LIVE ANTIGEN
     Indication: Product used for unknown indication
     Dosage: POWDER AND SOLVENT FOR CONCENTRATE FOR SOLUTION FOR INFUSION

REACTIONS (8)
  - Pancreatitis [Unknown]
  - Spinal osteoarthritis [Unknown]
  - Drug intolerance [Unknown]
  - Adverse drug reaction [Unknown]
  - Rectal haemorrhage [Unknown]
  - Frequent bowel movements [Unknown]
  - Drug ineffective [Unknown]
  - Therapeutic product effect decreased [Unknown]
